FAERS Safety Report 5045902-0 (Version None)
Quarter: 2006Q3

REPORT INFORMATION
  Report Type: 
  Country: None (occurrence: None)
  Receive Date: 20060710
  Receipt Date: 20060630
  Transmission Date: 20061208
  Serious: Yes (Hospitalization)
  Sender: FDA-Public Use
  Company Number: US-BRISTOL-MYERS SQUIBB COMPANY-13430145

PATIENT

DRUGS (1)
  1. KENALOG-40 [Suspect]

REACTIONS (1)
  - EYE INFECTION [None]
